FAERS Safety Report 11488415 (Version 1)
Quarter: 2015Q3

REPORT INFORMATION
  Report Type: Spontaneous
  Country: US (occurrence: US)
  Receive Date: 20150910
  Receipt Date: 20150910
  Transmission Date: 20151125
  Serious: No
  Sender: FDA-Public Use
  Company Number: US-ROCHE-1457420

PATIENT
  Sex: Female

DRUGS (2)
  1. PEGASYS [Suspect]
     Active Substance: PEGINTERFERON ALFA-2A
     Indication: CHRONIC HEPATITIS C
     Route: 065
     Dates: start: 20140725, end: 20140829
  2. RIBAVIRIN. [Suspect]
     Active Substance: RIBAVIRIN
     Indication: CHRONIC HEPATITIS C
     Route: 065
     Dates: start: 20140725, end: 20140829

REACTIONS (9)
  - Epistaxis [Unknown]
  - Aphonia [Unknown]
  - Alopecia [Unknown]
  - Pollakiuria [Unknown]
  - Dyspnoea [Unknown]
  - Urinary incontinence [Unknown]
  - Vomiting [Unknown]
  - Malaise [Unknown]
  - Weight decreased [Unknown]
